FAERS Safety Report 10452972 (Version 4)
Quarter: 2015Q2

REPORT INFORMATION
  Report Type: Spontaneous
  Country: US (occurrence: US)
  Receive Date: 20140915
  Receipt Date: 20150601
  Transmission Date: 20150821
  Serious: Yes (Hospitalization, Disabling, Other)
  Sender: FDA-Public Use
  Company Number: US-MERCK-1409USA006299

PATIENT
  Sex: Female
  Weight: 111.11 kg

DRUGS (2)
  1. JANUVIA [Suspect]
     Active Substance: SITAGLIPTIN PHOSPHATE
     Indication: TYPE 2 DIABETES MELLITUS
     Dosage: 100 MG, QD
     Route: 048
     Dates: start: 201101, end: 201110
  2. BYETTA [Suspect]
     Active Substance: EXENATIDE
     Indication: TYPE 2 DIABETES MELLITUS
     Dosage: 5 MICROGRAM/0.02 ML, BID
     Dates: start: 20110131, end: 20110331

REACTIONS (25)
  - Hypertension [Unknown]
  - Hypercholesterolaemia [Unknown]
  - Ear operation [Unknown]
  - Constipation [Unknown]
  - Hysterectomy [Unknown]
  - Retinopathy [Unknown]
  - Radiotherapy [Unknown]
  - Depression [Unknown]
  - Adrenal adenoma [Unknown]
  - Bile duct stent insertion [Unknown]
  - Diarrhoea [Not Recovered/Not Resolved]
  - Blindness [Unknown]
  - Malnutrition [Not Recovered/Not Resolved]
  - Dehydration [Unknown]
  - Device ineffective [Unknown]
  - Restless legs syndrome [Unknown]
  - Chronic obstructive pulmonary disease [Not Recovered/Not Resolved]
  - Bile duct stent insertion [Unknown]
  - Procedural haemorrhage [Unknown]
  - Postoperative wound infection [Recovering/Resolving]
  - Urinary tract infection [Unknown]
  - Back pain [Not Recovered/Not Resolved]
  - Splenomegaly [Unknown]
  - Adenocarcinoma pancreas [Not Recovered/Not Resolved]
  - Pancreaticoduodenectomy [Unknown]

NARRATIVE: CASE EVENT DATE: 20111012
